FAERS Safety Report 17265313 (Version 5)
Quarter: 2020Q1

REPORT INFORMATION
  Report Type: Report from Study
  Country: US (occurrence: US)
  Receive Date: 20200114
  Receipt Date: 20200312
  Transmission Date: 20200409
  Serious: Yes (Hospitalization, Other)
  Sender: FDA-Public Use
  Company Number: US-ACADIA PHARMACEUTICALS INC.-ACA-2019-PIM-000010

PATIENT
  Age: 71 Year
  Sex: Male
  Weight: 85 kg

DRUGS (6)
  1. NUPLAZID [Suspect]
     Active Substance: PIMAVANSERIN TARTRATE
     Indication: PARKINSON^S DISEASE PSYCHOSIS
     Dosage: 34 MILLIGRAM, QD
     Route: 048
     Dates: start: 20191226, end: 20200221
  2. FLOMAX [Concomitant]
     Active Substance: TAMSULOSIN HYDROCHLORIDE
     Indication: PRODUCT USED FOR UNKNOWN INDICATION
  3. NUPLAZID [Suspect]
     Active Substance: PIMAVANSERIN TARTRATE
     Indication: DELUSION
  4. NUPLAZID [Suspect]
     Active Substance: PIMAVANSERIN TARTRATE
     Indication: HALLUCINATION
  5. RYTARY [Suspect]
     Active Substance: CARBIDOPA\LEVODOPA
     Indication: HALLUCINATION
     Dosage: UNK
     Dates: start: 201906
  6. ATIVAN [Concomitant]
     Active Substance: LORAZEPAM
     Indication: PRODUCT USED FOR UNKNOWN INDICATION

REACTIONS (19)
  - Musculoskeletal stiffness [Unknown]
  - Aggression [Unknown]
  - Fall [Unknown]
  - Loss of personal independence in daily activities [Not Recovered/Not Resolved]
  - Agitation [Not Recovered/Not Resolved]
  - Confusional state [Not Recovered/Not Resolved]
  - Depressed level of consciousness [Unknown]
  - Cognitive disorder [Recovered/Resolved]
  - Hallucination [Recovered/Resolved]
  - Upper limb fracture [Unknown]
  - Bedridden [Recovered/Resolved]
  - Gait inability [Unknown]
  - Mental impairment [Not Recovered/Not Resolved]
  - Pneumonia aspiration [Recovered/Resolved]
  - Hallucination [Recovered/Resolved]
  - General physical health deterioration [Unknown]
  - Drug ineffective [Unknown]
  - Aggression [Not Recovered/Not Resolved]
  - Agitation [Unknown]

NARRATIVE: CASE EVENT DATE: 202001
